FAERS Safety Report 18437239 (Version 1)
Quarter: 2020Q4

REPORT INFORMATION
  Report Type: Spontaneous
  Country: DE (occurrence: DE)
  Receive Date: 20201028
  Receipt Date: 20201028
  Transmission Date: 20210114
  Serious: Yes (Other)
  Sender: FDA-Public Use
  Company Number: NVSC2020DE285180

PATIENT
  Sex: Female

DRUGS (1)
  1. LETROZOL - 1A PHARMA 2,5 MG FILMTABLETTEN [Suspect]
     Active Substance: LETROZOLE
     Indication: PRODUCT USED FOR UNKNOWN INDICATION
     Dosage: UNK
     Route: 065
     Dates: start: 202003

REACTIONS (3)
  - Pain [Unknown]
  - Arthralgia [Unknown]
  - Jaw fistula [Unknown]

NARRATIVE: CASE EVENT DATE: 2020
